FAERS Safety Report 8115221-4 (Version None)
Quarter: 2012Q1

REPORT INFORMATION
  Report Type: 
  Country: None (occurrence: None)
  Receive Date: 20120206
  Receipt Date: 20120126
  Transmission Date: 20120608
  Serious: Yes (Death, Hospitalization)
  Sender: FDA-Public Use
  Company Number: NZ-ASTELLAS-2012US001412

PATIENT
  Sex: Male

DRUGS (1)
  1. TARCEVA [Suspect]
     Indication: LUNG NEOPLASM MALIGNANT
     Dosage: 100 MG, UNKNOWN/D
     Route: 048

REACTIONS (6)
  - DEATH [None]
  - INCORRECT DOSE ADMINISTERED [None]
  - GASTROINTESTINAL PERFORATION [None]
  - DIVERTICULITIS [None]
  - ABDOMINAL PAIN [None]
  - DIARRHOEA [None]
